FAERS Safety Report 13230060 (Version 1)
Quarter: 2017Q1

REPORT INFORMATION
  Report Type: Spontaneous
  Country: US (occurrence: US)
  Receive Date: 20170213
  Receipt Date: 20170213
  Transmission Date: 20170428
  Serious: Yes (Other)
  Sender: FDA-Public Use
  Company Number: None

PATIENT
  Age: 59 Year
  Sex: Male
  Weight: 81 kg

DRUGS (6)
  1. LANTUS SOLOSTAR [Suspect]
     Active Substance: INSULIN GLARGINE
     Indication: TYPE 2 DIABETES MELLITUS
     Dosage: 56 UNITS DAILY; 1 INJECTION DAILY; INTRAMUSCULAR?
     Route: 030
     Dates: start: 20161223, end: 20170116
  2. NOVOLOG [Concomitant]
     Active Substance: INSULIN ASPART
  3. INSULIN PUMP [Concomitant]
     Active Substance: INSULIN NOS
  4. TOUJEO [Concomitant]
     Active Substance: INSULIN GLARGINE
  5. GABAPENTIN. [Concomitant]
     Active Substance: GABAPENTIN
  6. ELIQUIS [Concomitant]
     Active Substance: APIXABAN

REACTIONS (4)
  - Pain [None]
  - Product substitution issue [None]
  - Urticaria [None]
  - Rash [None]

NARRATIVE: CASE EVENT DATE: 20170116
